FAERS Safety Report 13516728 (Version 1)
Quarter: 2017Q2

REPORT INFORMATION
  Report Type: Spontaneous
  Country: US (occurrence: US)
  Receive Date: 20170505
  Receipt Date: 20170505
  Transmission Date: 20170830
  Serious: Yes (Hospitalization)
  Sender: FDA-Public Use
  Company Number: US-ASTRAZENECA-2017SE45839

PATIENT
  Age: 29820 Day
  Sex: Male
  Weight: 99.8 kg

DRUGS (1)
  1. BYDUREON [Suspect]
     Active Substance: EXENATIDE
     Indication: TYPE 2 DIABETES MELLITUS
     Route: 058
     Dates: start: 20170408

REACTIONS (7)
  - Sepsis [Unknown]
  - Gastrooesophageal reflux disease [Recovered/Resolved]
  - Pollakiuria [Unknown]
  - Cholecystitis [Unknown]
  - Abdominal discomfort [Unknown]
  - Chest pain [Unknown]
  - Pancreatitis acute [Unknown]

NARRATIVE: CASE EVENT DATE: 20170408
